FAERS Safety Report 10308744 (Version 2)
Quarter: 2014Q4

REPORT INFORMATION
  Report Type: Spontaneous
  Country: IT (occurrence: IT)
  Receive Date: 20140716
  Receipt Date: 20141014
  Transmission Date: 20150528
  Serious: Yes (Life-Threatening, Hospitalization)
  Sender: FDA-Public Use
  Company Number: IT-BRISTOL-MYERS SQUIBB COMPANY-21180864

PATIENT
  Age: 79 Year
  Sex: Female

DRUGS (10)
  1. APIDRA [Suspect]
     Active Substance: INSULIN GLULISINE
     Indication: TYPE 2 DIABETES MELLITUS
     Route: 058
     Dates: start: 20140314, end: 20140616
  2. LASIX [Concomitant]
     Active Substance: FUROSEMIDE
  3. LANTUS [Suspect]
     Active Substance: INSULIN GLARGINE
     Indication: TYPE 2 DIABETES MELLITUS
     Route: 058
     Dates: start: 20140314, end: 20140616
  4. UNIPRIL [Concomitant]
     Active Substance: RAMIPRIL
  5. CRESTOR [Concomitant]
     Active Substance: ROSUVASTATIN CALCIUM
  6. PARIET [Concomitant]
     Active Substance: RABEPRAZOLE SODIUM
  7. METFORMIN HCL [Suspect]
     Active Substance: METFORMIN HYDROCHLORIDE
     Indication: TYPE 2 DIABETES MELLITUS
     Route: 048
     Dates: start: 20140101, end: 20140616
  8. NORVASC [Concomitant]
     Active Substance: AMLODIPINE BESYLATE
  9. LANOXIN [Concomitant]
     Active Substance: DIGOXIN
  10. SINTROM [Concomitant]
     Active Substance: ACENOCOUMAROL

REACTIONS (1)
  - Hypoglycaemic coma [Recovered/Resolved]

NARRATIVE: CASE EVENT DATE: 20140616
